FAERS Safety Report 16698245 (Version 1)
Quarter: 2019Q3

REPORT INFORMATION
  Report Type: Spontaneous
  Country: DE (occurrence: DE)
  Receive Date: 20190813
  Receipt Date: 20190813
  Transmission Date: 20191004
  Serious: Yes (Hospitalization)
  Sender: FDA-Public Use
  Company Number: DE-ELI_LILLY_AND_COMPANY-DE201908001817

PATIENT
  Age: 88 Year
  Sex: Female

DRUGS (11)
  1. ACETYLSALICYLIC ACID [Concomitant]
     Active Substance: ASPIRIN
     Dosage: 100 MG, 0-1-0-0
  2. LACTULOSE. [Concomitant]
     Active Substance: LACTULOSE
     Dosage: 20 ML, 1-0-0-0
  3. PREGABALIN. [Concomitant]
     Active Substance: PREGABALIN
     Dosage: 25 MG, 1-0-1-0
  4. FENTANYL. [Concomitant]
     Active Substance: FENTANYL
     Dosage: 25 UG EACH THREE DAYS
  5. METOPROLOL. [Concomitant]
     Active Substance: METOPROLOL
     Dosage: 23.75 MG, 1-0-1-0
  6. ALENDRONIC ACID [Concomitant]
     Active Substance: ALENDRONIC ACID
     Dosage: 70 MG, 1-0-0-0 (NUR SAMSTAG)
  7. METAMIZOL [METAMIZOLE SODIUM] [Concomitant]
     Dosage: NK MG, 30GTT-30GTT-30GTT-0
  8. INSULIN HUMAN [Suspect]
     Active Substance: INSULIN HUMAN
     Indication: PRODUCT USED FOR UNKNOWN INDICATION
     Dosage: 210/90 UI, 20-0-12 IF BELOW 10 MG/DL 16-0-12
     Route: 058
  9. PANTOPRAZOL [PANTOPRAZOLE SODIUM SESQUIHYDRAT [Concomitant]
     Dosage: 40 MG, 1-0-0-0
  10. CITALOPRAM [Concomitant]
     Active Substance: CITALOPRAM HYDROBROMIDE
     Dosage: 10 MG, 1-0-0-0
  11. RAMIPRIL. [Concomitant]
     Active Substance: RAMIPRIL
     Dosage: 5 MG, 0.5-0-0.5-0

REACTIONS (2)
  - Abdominal pain [Unknown]
  - Hypoglycaemia [Unknown]
